FAERS Safety Report 8104293 (Version 3)
Quarter: 2013Q4

REPORT INFORMATION
  Report Type: Spontaneous
  Country: FR (occurrence: FR)
  Receive Date: 20110824
  Receipt Date: 20131106
  Transmission Date: 20140711
  Serious: Yes (Hospitalization, Other)
  Sender: FDA-Public Use
  Company Number: FR-009507513-1108FRA00082

PATIENT
  Age: 41 Year
  Sex: Female

DRUGS (3)
  1. JANUVIA [Suspect]
     Indication: DIABETES MELLITUS
     Dosage: 100 MG, QD
     Route: 048
     Dates: start: 20090626, end: 201106
  2. METFORMIN HYDROCHLORIDE [Concomitant]
     Indication: DIABETES MELLITUS
     Route: 048
     Dates: end: 201005
  3. LEVOTHYROX [Concomitant]
     Route: 048
     Dates: end: 201005

REACTIONS (3)
  - Pancreatitis [Unknown]
  - Cholangitis [Unknown]
  - Cholelithiasis [Unknown]
